FAERS Safety Report 5380596-6 (Version None)
Quarter: 2007Q3

REPORT INFORMATION
  Report Type: 
  Country: None (occurrence: None)
  Receive Date: 20070706
  Receipt Date: 20070628
  Transmission Date: 20080115
  Serious: Yes (Life-Threatening, Hospitalization)
  Sender: FDA-Public Use
  Company Number: CH-ASTRAZENECA-2007PK01312

PATIENT
  Age: 43 Year
  Sex: Female
  Weight: 60 kg

DRUGS (15)
  1. BELOC ZOK [Suspect]
     Indication: ATRIAL FIBRILLATION
     Route: 048
  2. BELOC ZOK [Suspect]
     Indication: ATRIAL FLUTTER
     Route: 048
  3. LOPRESSOR [Suspect]
     Indication: ATRIAL FIBRILLATION
     Route: 042
     Dates: start: 20070429, end: 20070429
  4. LOPRESSOR [Suspect]
     Indication: ATRIAL FLUTTER
     Route: 042
     Dates: start: 20070429, end: 20070429
  5. FLUCLOXACILLINE [Concomitant]
     Indication: ACUTE ENDOCARDITIS
     Route: 042
  6. ENOXAPARIN SODIUM [Concomitant]
     Indication: PROPHYLAXIS
     Route: 058
  7. PARACETAMOL [Concomitant]
     Route: 048
  8. RIFAMPICIN [Concomitant]
     Indication: ACUTE ENDOCARDITIS
     Route: 048
  9. BROMAZEPAM [Concomitant]
     Route: 048
  10. POTASSIUM ACETATE [Concomitant]
     Route: 048
  11. MORPHINE [Concomitant]
     Indication: PAIN
     Route: 048
  12. TORSEMIDE [Concomitant]
     Indication: ESSENTIAL HYPERTENSION
     Route: 048
  13. ZOLPIDEM TARTRATE [Concomitant]
     Route: 048
  14. ASPIRIN [Concomitant]
     Indication: PROPHYLAXIS
     Route: 048
  15. REBOXETINE [Concomitant]
     Route: 048

REACTIONS (5)
  - CARDIOGENIC SHOCK [None]
  - DRUG INEFFECTIVE [None]
  - METABOLIC ACIDOSIS [None]
  - PULMONARY OEDEMA [None]
  - SUPRAVENTRICULAR TACHYCARDIA [None]
